FAERS Safety Report 7321014-8 (Version None)
Quarter: 2011Q1

REPORT INFORMATION
  Report Type: 
  Country: None (occurrence: None)
  Receive Date: 20110228
  Receipt Date: 20110218
  Transmission Date: 20110831
  Serious: Yes (Hospitalization)
  Sender: FDA-Public Use
  Company Number: US-JNJFOC-20080904717

PATIENT
  Sex: Female
  Weight: 56.7 kg

DRUGS (4)
  1. DURAGESIC-50 [Suspect]
     Indication: PAIN
     Route: 062
  2. DURAGESIC-50 [Suspect]
     Route: 062
  3. DURAGESIC-50 [Suspect]
     Indication: NEURALGIA
     Route: 062
  4. PREVACID [Concomitant]
     Indication: GASTRIC DISORDER
     Route: 048

REACTIONS (5)
  - AGITATION [None]
  - SPINAL COLUMN STENOSIS [None]
  - INAPPROPRIATE SCHEDULE OF DRUG ADMINISTRATION [None]
  - DRUG PRESCRIBING ERROR [None]
  - PRODUCT PACKAGING QUANTITY ISSUE [None]
